FAERS Safety Report 6041213-5 (Version None)
Quarter: 2009Q1

REPORT INFORMATION
  Report Type: 
  Country: None (occurrence: None)
  Receive Date: 20090116
  Receipt Date: 20080917
  Transmission Date: 20090719
  Serious: No
  Sender: FDA-Public Use
  Company Number: US-BRISTOL-MYERS SQUIBB COMPANY-14338321

PATIENT
  Age: 24 Year
  Sex: Female

DRUGS (1)
  1. ABILIFY [Suspect]
     Dosage: INITIATED AT 2MG  INCREASED TO 4MG
     Dates: start: 20080829, end: 20080915

REACTIONS (3)
  - DIZZINESS [None]
  - NAUSEA [None]
  - PAIN [None]
